FAERS Safety Report 22772968 (Version 4)
Quarter: 2024Q1

REPORT INFORMATION
  Report Type: Spontaneous
  Country: IN (occurrence: IN)
  Receive Date: 20230801
  Receipt Date: 20240216
  Transmission Date: 20240410
  Serious: Yes (Other)
  Sender: FDA-Public Use
  Company Number: IN-PFIZER INC-PV202200082074

PATIENT
  Age: 39 Year
  Sex: Female
  Weight: 85.1 kg

DRUGS (1)
  1. DACOMITINIB [Suspect]
     Active Substance: DACOMITINIB
     Indication: Lung adenocarcinoma
     Dosage: 30 MG, 1X/DAY (BEFORE MEAL)
     Route: 048

REACTIONS (12)
  - Cerebral atrophy [Unknown]
  - Neoplasm progression [Unknown]
  - Body mass index increased [Unknown]
  - Paronychia [Unknown]
  - Blood pressure increased [Unknown]
  - Pruritus [Unknown]
  - Heart rate increased [Unknown]
  - Weight decreased [Unknown]
  - Rash [Unknown]
  - White matter lesion [Unknown]
  - Nail disorder [Unknown]
  - Off label use [Unknown]

NARRATIVE: CASE EVENT DATE: 20211130
